FAERS Safety Report 9255621 (Version 1)
Quarter: 2013Q1

REPORT INFORMATION
  Report Type: Spontaneous
  Country: US (occurrence: None)
  Receive Date: 20121212
  Receipt Date: 20121212
  Transmission Date: 20140127
  Serious: No
  Sender: FDA-Public Use
  Company Number: 1208USA010181

PATIENT
  Age: 62 Year
  Sex: Male
  Weight: 108.8 kg

DRUGS (5)
  1. PEG-INTRON [Suspect]
     Route: 058
     Dates: start: 20120530, end: 20120930
  2. VICTRELIS [Suspect]
     Dates: start: 20120628, end: 20120930
  3. DIOVAN (VALSARTAN) [Concomitant]
  4. HYDROCHLOROT (HYDROCHLOROTHIAZIDE) [Concomitant]
  5. RIBAVIRIN [Suspect]
     Dates: start: 20120530, end: 20120930

REACTIONS (1)
  - Anaemia [None]
